FAERS Safety Report 25395900 (Version 1)
Quarter: 2025Q2

REPORT INFORMATION
  Report Type: Spontaneous
  Country: DE (occurrence: DE)
  Receive Date: 20250604
  Receipt Date: 20250604
  Transmission Date: 20250717
  Serious: Yes (Other)
  Sender: MYLAN
  Company Number: DE-Bausch and Lomb-2025BNL008730

PATIENT
  Age: 69 Year
  Sex: Male

DRUGS (12)
  1. ACETAMINOPHEN [Suspect]
     Active Substance: ACETAMINOPHEN
     Indication: Trigeminal neuralgia
  2. ACETAMINOPHEN [Suspect]
     Active Substance: ACETAMINOPHEN
     Route: 065
  3. ACETAMINOPHEN [Suspect]
     Active Substance: ACETAMINOPHEN
     Route: 065
  4. ACETAMINOPHEN [Suspect]
     Active Substance: ACETAMINOPHEN
  5. MEPERIDINE [Suspect]
     Active Substance: MEPERIDINE
     Indication: Trigeminal neuralgia
  6. MEPERIDINE [Suspect]
     Active Substance: MEPERIDINE
     Route: 065
  7. MEPERIDINE [Suspect]
     Active Substance: MEPERIDINE
     Route: 065
  8. MEPERIDINE [Suspect]
     Active Substance: MEPERIDINE
  9. PHENYTOIN [Suspect]
     Active Substance: PHENYTOIN
     Indication: Trigeminal neuralgia
  10. PHENYTOIN [Suspect]
     Active Substance: PHENYTOIN
     Route: 065
  11. PHENYTOIN [Suspect]
     Active Substance: PHENYTOIN
     Route: 065
  12. PHENYTOIN [Suspect]
     Active Substance: PHENYTOIN

REACTIONS (1)
  - Therapy non-responder [Unknown]
